FAERS Safety Report 7425361-0 (Version None)
Quarter: 2011Q1

REPORT INFORMATION
  Report Type: 
  Country: None (occurrence: None)
  Receive Date: 20110302
  Receipt Date: 20101108
  Transmission Date: 20110831
  Serious: No
  Sender: FDA-Public Use
  Company Number: 017724

PATIENT
  Sex: Female
  Weight: 45.4 kg

DRUGS (1)
  1. CIMZIA [Suspect]
     Indication: CROHN'S DISEASE
     Dosage: (400 MG 1X/28 DAYS SUBCUTANEOUS)
     Route: 058
     Dates: start: 20090301, end: 20100913

REACTIONS (2)
  - TONGUE DISORDER [None]
  - OROPHARYNGEAL PAIN [None]
